FAERS Safety Report 25107652 (Version 2)
Quarter: 2025Q3

REPORT INFORMATION
  Report Type: Report from Study
  Country: CA (occurrence: CA)
  Receive Date: 20250322
  Receipt Date: 20250720
  Transmission Date: 20251020
  Serious: Yes (Other)
  Sender: ABBVIE
  Company Number: CA-LUNDBECK-DKLU4011887

PATIENT
  Age: 40 Year
  Sex: Female

DRUGS (4)
  1. CELEXA [Suspect]
     Active Substance: CITALOPRAM HYDROBROMIDE
     Indication: Depression
     Route: 048
  2. GILENYA [Suspect]
     Active Substance: FINGOLIMOD HYDROCHLORIDE
     Indication: Relapsing-remitting multiple sclerosis
     Dosage: 0.5 MILLIGRAM
     Route: 048
  3. GILENYA [Suspect]
     Active Substance: FINGOLIMOD HYDROCHLORIDE
     Indication: Relapsing-remitting multiple sclerosis
     Dosage: 0.5 MILLIGRAM
     Route: 048
  4. GILENYA [Suspect]
     Active Substance: FINGOLIMOD HYDROCHLORIDE
     Indication: Relapsing-remitting multiple sclerosis
     Route: 048

REACTIONS (30)
  - Multiple sclerosis [Unknown]
  - Headache [Not Recovered/Not Resolved]
  - Gamma-glutamyltransferase increased [Unknown]
  - Balance disorder [Unknown]
  - Dizziness [Unknown]
  - Tremor [Unknown]
  - Urinary tract infection [Unknown]
  - Gait disturbance [Unknown]
  - Drug ineffective [Unknown]
  - Peripheral swelling [Unknown]
  - Vision blurred [Unknown]
  - Weight increased [Unknown]
  - Migraine [Unknown]
  - Decreased activity [Unknown]
  - Blood pressure decreased [Unknown]
  - Depression [Unknown]
  - Burning sensation [Unknown]
  - Anxiety [Unknown]
  - Blood glucose increased [Unknown]
  - Hypertension [Unknown]
  - Paraesthesia [Unknown]
  - Fatigue [Not Recovered/Not Resolved]
  - Bundle branch block right [Unknown]
  - Motor dysfunction [Unknown]
  - Tachycardia [Unknown]
  - Limb discomfort [Unknown]
  - Skin burning sensation [Unknown]
  - Diplopia [Recovered/Resolved]
  - Hypokinesia [Unknown]
  - Product dose omission issue [Unknown]
